FAERS Safety Report 9361016 (Version 1)
Quarter: 2013Q2

REPORT INFORMATION
  Report Type: Report from Study
  Country: US (occurrence: US)
  Receive Date: 20130621
  Receipt Date: 20130621
  Transmission Date: 20140414
  Serious: Yes (Other)
  Sender: FDA-Public Use
  Company Number: US-BAUSCH-BL-2013-003683

PATIENT
  Age: 31 Year
  Sex: Female

DRUGS (1)
  1. FLUOCINOLONE ACETONIDE INTRAVITREAL IMPLANT (0.5 MG) [Suspect]
     Indication: UVEITIS
     Dosage: IMPLANT LEFT EYE

REACTIONS (2)
  - Implant site fibrosis [Recovered/Resolved]
  - Device malfunction [Recovered/Resolved]
